FAERS Safety Report 7033900-7 (Version None)
Quarter: 2010Q4

REPORT INFORMATION
  Report Type: 
  Country: None (occurrence: None)
  Receive Date: 20101005
  Receipt Date: 20100928
  Transmission Date: 20110411
  Serious: Yes (Hospitalization)
  Sender: FDA-Public Use
  Company Number: CIP10002365

PATIENT
  Age: 70 Year
  Sex: Female

DRUGS (5)
  1. ACTONEL [Suspect]
     Dosage: 35 MG ONCE WEEKLY, ORAL
     Route: 048
     Dates: start: 20060101, end: 20100901
  2. PRAVACHOL [Concomitant]
  3. NORVASC [Concomitant]
  4. TOPROL-XL [Concomitant]
  5. CALCIUM (CALCIUM) [Concomitant]

REACTIONS (13)
  - ABDOMINAL DISTENSION [None]
  - ABDOMINAL PAIN UPPER [None]
  - BRADYPHRENIA [None]
  - CLOSTRIDIUM DIFFICILE COLITIS [None]
  - DYSGRAPHIA [None]
  - FEELING ABNORMAL [None]
  - FIBROMYALGIA [None]
  - LOCALISED INFECTION [None]
  - MENTAL IMPAIRMENT [None]
  - NAIL INFECTION [None]
  - NECK PAIN [None]
  - PAIN [None]
  - THROMBOSIS [None]
